FAERS Safety Report 8815396 (Version 1)
Quarter: 2012Q4

REPORT INFORMATION
  Report Type: 
  Country: US (occurrence: US)
  Receive Date: 20120928
  Receipt Date: 20120928
  Transmission Date: 20130627
  Serious: Yes (Life-Threatening)
  Sender: FDA-Public Use
  Company Number: CHPA2012US020493

PATIENT
  Sex: Male

DRUGS (3)
  1. NUPERCAINAL HEMORRHOIDAL/ANES OINTMENT [Suspect]
     Indication: BURNING SENSATION
     Dosage: UNK, as needed
     Route: 061
  2. AMIODARONE [Suspect]
     Dosage: Unk, Unk
     Route: 065
  3. DIBUCAINE [Concomitant]
     Indication: BURNING SENSATION

REACTIONS (2)
  - Anaphylactic reaction [Recovered/Resolved]
  - Throat tightness [Recovered/Resolved]
